FAERS Safety Report 23080347 (Version 1)
Quarter: 2023Q4

REPORT INFORMATION
  Report Type: Spontaneous
  Country: US (occurrence: US)
  Receive Date: 20231018
  Receipt Date: 20231018
  Transmission Date: 20240109
  Serious: Yes (Life-Threatening, Hospitalization, Other)
  Sender: FDA-Public Use
  Company Number: US-MLMSERVICE-20231004-4581010-1

PATIENT
  Age: 41 Year
  Sex: Male

DRUGS (1)
  1. ACETAMINOPHEN [Suspect]
     Active Substance: ACETAMINOPHEN
     Indication: Intentional overdose
     Dosage: UNK
     Route: 048

REACTIONS (4)
  - Hypotension [Unknown]
  - Right ventricle outflow tract obstruction [Recovered/Resolved]
  - Acute hepatic failure [Unknown]
  - Intentional overdose [Unknown]
